FAERS Safety Report 8539405-6 (Version None)
Quarter: 2012Q3

REPORT INFORMATION
  Report Type: 
  Country: None (occurrence: None)
  Receive Date: 20120716
  Receipt Date: 20120702
  Transmission Date: 20120928
  Serious: Yes (Other)
  Sender: FDA-Public Use
  Company Number: AUR-APL-2012-02887

PATIENT
  Age: 50 Year
  Sex: Female

DRUGS (4)
  1. MIRTAZAPINE [Suspect]
     Indication: DEPRESSIVE SYMPTOM
     Dosage: 45 MG, ORAL
     Route: 048
     Dates: start: 20060101, end: 20120121
  2. CLOZARIL [Suspect]
     Indication: SCHIZOPHRENIA
     Dosage: 75;650 MG
     Dates: start: 20060814, end: 20120109
  3. CLOZARIL [Suspect]
     Indication: SCHIZOPHRENIA
     Dosage: 75;650 MG
     Dates: start: 20120112, end: 20120117
  4. TOPIRAMATE [Suspect]
     Indication: PSYCHOTIC DISORDER
     Dosage: 300 MG, ORAL
     Route: 048
     Dates: start: 20070101, end: 20120121

REACTIONS (5)
  - TOOTHACHE [None]
  - NEUTROPHIL COUNT DECREASED [None]
  - ROAD TRAFFIC ACCIDENT [None]
  - WHITE BLOOD CELL COUNT INCREASED [None]
  - PLATELET COUNT DECREASED [None]
